FAERS Safety Report 8162452-3 (Version None)
Quarter: 2012Q1

REPORT INFORMATION
  Report Type: 
  Country: None (occurrence: None)
  Receive Date: 20120224
  Receipt Date: 20120210
  Transmission Date: 20120608
  Serious: Yes (Other)
  Sender: FDA-Public Use
  Company Number: FR-CELGENEUS-056-C5013-12012295

PATIENT
  Sex: Male
  Weight: 82.5 kg

DRUGS (10)
  1. ALUMINUM HYDROXIDE AND MAGNESIUM TRISILICATE [Concomitant]
     Dosage: 2BAGS
     Route: 048
     Dates: start: 20100720
  2. AMOXICILLIN [Concomitant]
     Indication: BRONCHITIS
     Dosage: 1 GRAM
     Route: 048
     Dates: start: 20101204, end: 20101211
  3. LERCANIDIPINE [Concomitant]
     Dosage: 15 MILLIGRAM
     Route: 048
     Dates: start: 20110301
  4. ARESTAL [Concomitant]
     Dosage: 1 MILLIGRAM
     Route: 048
     Dates: start: 20111001
  5. CEFIXIME [Concomitant]
     Indication: BRONCHITIS
     Dosage: 200 MILLIGRAM
     Route: 048
     Dates: start: 20101218, end: 20101223
  6. LENALIDOMIDE [Suspect]
     Dosage: 15 MILLIGRAM
     Route: 048
     Dates: start: 20120105
  7. ACTONEL [Concomitant]
     Indication: OSTEOPOROSIS
     Dosage: 5 MILLIGRAM
     Route: 048
     Dates: start: 20080801
  8. LENALIDOMIDE [Suspect]
     Indication: MULTIPLE MYELOMA
     Dosage: 25 MILLIGRAM
     Route: 048
     Dates: start: 20100105
  9. ARIXTRA [Concomitant]
     Indication: THROMBOSIS PROPHYLAXIS
     Dosage: 7.5 MILLIGRAM
     Route: 058
     Dates: start: 20100326
  10. DEXAMETHASONE [Suspect]
     Indication: MULTIPLE MYELOMA
     Dosage: 40 MILLIGRAM
     Route: 065
     Dates: start: 20100105, end: 20100323

REACTIONS (1)
  - BASAL CELL CARCINOMA [None]
